FAERS Safety Report 8967656 (Version 2)
Quarter: 2013Q1

REPORT INFORMATION
  Report Type: Spontaneous
  Country: US (occurrence: None)
  Receive Date: 20121206
  Receipt Date: 20121212
  Transmission Date: 20140127
  Serious: Yes (Hospitalization)
  Sender: FDA-Public Use
  Company Number: 2012AP004091

PATIENT
  Age: 54 Year
  Sex: Female

DRUGS (22)
  1. LAMIVUDINE [Suspect]
     Indication: HIV INFECTION
  2. NEVIRAPINE [Suspect]
  3. TENOFOVIR [Suspect]
  4. EMTRICITABINE [Suspect]
  5. KALETRA [Suspect]
  6. ZIDOVUDINE [Suspect]
  7. INDINAVIR [Suspect]
  8. STAVUDINE [Suspect]
  9. DIDANOSINE [Suspect]
  10. HYDROXYCARBAMIDE [Suspect]
  11. NELFINAVIR [Suspect]
  12. SAQUINAVIR [Suspect]
  13. ABACAVIR [Concomitant]
  14. ACETAZOLAMIDE [Concomitant]
  15. FLUCONAZOLE [Concomitant]
  16. NAPROXEN [Concomitant]
  17. GABAPENTIN [Concomitant]
  18. NORTRIPTYLINE [Concomitant]
  19. CALCIDOSE VITAMINE D3 [Concomitant]
  20. TRAZODONE [Concomitant]
  21. LIDOCAINE [Concomitant]
  22. FEXOFENADINE [Concomitant]

REACTIONS (9)
  - Myocardial infarction [None]
  - Coronary artery disease [None]
  - Carbon dioxide decreased [None]
  - Blood potassium decreased [None]
  - Blood phosphorus decreased [None]
  - Progressive facial hemiatrophy [None]
  - Atelectasis [None]
  - Pulmonary fibrosis [None]
  - White blood cell count increased [None]
